FAERS Safety Report 5541517-6 (Version None)
Quarter: 2007Q4

REPORT INFORMATION
  Report Type: 
  Country: None (occurrence: None)
  Receive Date: 20071210
  Receipt Date: 20071204
  Transmission Date: 20080405
  Serious: Yes (Death, Hospitalization)
  Sender: FDA-Public Use
  Company Number: PHEH2007US13267

PATIENT
  Age: 39 Year
  Sex: Female
  Weight: 67 kg

DRUGS (1)
  1. EXJADE [Suspect]
     Indication: IRON METABOLISM DISORDER
     Dosage: 750 MG, QD
     Route: 048
     Dates: start: 20070427, end: 20070925

REACTIONS (4)
  - AMMONIA ABNORMAL [None]
  - DEATH [None]
  - LIVER DISORDER [None]
  - YELLOW SKIN [None]
